FAERS Safety Report 19193242 (Version 1)
Quarter: 2021Q2

REPORT INFORMATION
  Report Type: Other
  Country: TW (occurrence: US)
  Receive Date: 20210429
  Receipt Date: 20210429
  Transmission Date: 20210717
  Serious: Yes (Hospitalization, Other)
  Sender: FDA-Public Use
  Company Number: US-APPCO PHARMA LLC-2109981

PATIENT
  Age: 57 Year
  Sex: Female

DRUGS (7)
  1. HYDROXYCHLOROQUINE SULFATE. [Suspect]
     Active Substance: HYDROXYCHLOROQUINE SULFATE
     Indication: PYODERMA GANGRENOSUM
     Route: 065
  2. PREDNISOLONE. [Suspect]
     Active Substance: PREDNISOLONE
     Route: 065
  3. CYCLOSPORINE. [Suspect]
     Active Substance: CYCLOSPORINE
     Route: 065
  4. METHOTREXATE. [Suspect]
     Active Substance: METHOTREXATE
     Route: 065
  5. SECUKINUMAB. [Suspect]
     Active Substance: SECUKINUMAB
     Route: 065
     Dates: start: 20190404, end: 20190515
  6. BRODALUMAB [Suspect]
     Active Substance: BRODALUMAB
     Route: 065
     Dates: start: 20190603, end: 20190617
  7. COLCHICINE. [Suspect]
     Active Substance: COLCHICINE
     Route: 065

REACTIONS (6)
  - Hypertension [Unknown]
  - Cushing^s syndrome [Unknown]
  - Drug ineffective for unapproved indication [Unknown]
  - Hypertrichosis [Unknown]
  - Putamen haemorrhage [Unknown]
  - Hyperglycaemia [Unknown]

NARRATIVE: CASE EVENT DATE: 201911
